FAERS Safety Report 8514673-5 (Version None)
Quarter: 2012Q3

REPORT INFORMATION
  Report Type: 
  Country: None (occurrence: None)
  Receive Date: 20120712
  Receipt Date: 20120626
  Transmission Date: 20120928
  Serious: Yes (Death, Hospitalization)
  Sender: FDA-Public Use
  Company Number: 2012031594

PATIENT
  Age: 75 Year
  Sex: Male

DRUGS (5)
  1. TAMSULOSIN HCL [Concomitant]
  2. GABAPENTIN [Concomitant]
  3. BISOPROLOLOL [Concomitant]
  4. PANTOPRAZOLE [Concomitant]
  5. PRIVIGEN [Suspect]
     Indication: CHRONIC LYMPHOCYTIC LEUKAEMIA
     Dosage: 20 G QD, 35 - 280 ML/H INTRAVENOUS (NOT OTHERWISE SPECIFIED)
     Dates: start: 20120302, end: 20120302

REACTIONS (3)
  - PYREXIA [None]
  - GENERAL PHYSICAL HEALTH DETERIORATION [None]
  - SEPSIS [None]
